FAERS Safety Report 25478713 (Version 1)
Quarter: 2025Q2

REPORT INFORMATION
  Report Type: Spontaneous
  Country: GB (occurrence: GB)
  Receive Date: 20250625
  Receipt Date: 20250625
  Transmission Date: 20250717
  Serious: Yes (Hospitalization, Disabling, Other)
  Sender: AUROBINDO
  Company Number: GB-BRAUNP-GB-BBM-202502168

PATIENT
  Age: 8 Week
  Sex: Male

DRUGS (1)
  1. ACETAMINOPHEN [Suspect]
     Active Substance: ACETAMINOPHEN
     Indication: Pain
     Route: 065

REACTIONS (8)
  - Seizure [Unknown]
  - Brain oedema [Unknown]
  - Brain injury [Unknown]
  - Heart rate increased [Unknown]
  - Pain [Unknown]
  - Chills [Unknown]
  - Dyskinesia [Unknown]
  - Overdose [Unknown]
